FAERS Safety Report 25224898 (Version 1)
Quarter: 2025Q2

REPORT INFORMATION
  Report Type: Spontaneous
  Country: IT (occurrence: IT)
  Receive Date: 20250422
  Receipt Date: 20250422
  Transmission Date: 20250717
  Serious: Yes (Other)
  Sender: MYLAN
  Company Number: IT-MYLANLABS-2025M1034415

PATIENT
  Age: 50 Year
  Sex: Male

DRUGS (9)
  1. GEMCITABINE [Suspect]
     Active Substance: GEMCITABINE
     Indication: Transitional cell carcinoma
  2. CISPLATIN [Suspect]
     Active Substance: CISPLATIN
     Indication: Transitional cell carcinoma
  3. Immunoglobulin [Concomitant]
     Indication: Dermatomyositis
  4. Immunoglobulin [Concomitant]
     Indication: Condition aggravated
  5. Immunoglobulin [Concomitant]
     Indication: Prophylaxis
  6. PREDNISONE [Concomitant]
     Active Substance: PREDNISONE
     Indication: Dermatomyositis
     Dosage: UNK, QD (DOSE INCREASED)
  7. PREDNISONE [Concomitant]
     Active Substance: PREDNISONE
     Dosage: UNK, QD (TAPERED TO { 10 MG)
  8. PEGFILGRASTIM [Concomitant]
     Active Substance: PEGFILGRASTIM
     Indication: Product used for unknown indication
  9. DEXAMETHASONE [Concomitant]
     Active Substance: DEXAMETHASONE
     Indication: Product used for unknown indication

REACTIONS (2)
  - Drug ineffective [Unknown]
  - Disease progression [Unknown]
